FAERS Safety Report 9125724 (Version 3)
Quarter: 2013Q4

REPORT INFORMATION
  Report Type: Spontaneous
  Country: US (occurrence: US)
  Receive Date: 20130227
  Receipt Date: 20131203
  Transmission Date: 20140711
  Serious: Yes (Hospitalization)
  Sender: FDA-Public Use
  Company Number: US-B.I. PHARMACEUTICALS,INC./RIDGEFIELD-2012-BI-00091BP

PATIENT
  Age: 85 Year
  Sex: Male
  Weight: 65.77 kg

DRUGS (10)
  1. PRADAXA [Suspect]
     Indication: ATRIAL FIBRILLATION
     Dosage: 300 MG
     Route: 048
     Dates: start: 20110216, end: 20110728
  2. PRADAXA [Suspect]
     Indication: ANTICOAGULANT THERAPY
  3. ASPIRIN [Concomitant]
     Indication: ATRIAL FIBRILLATION
     Dosage: 325 MG
     Route: 048
  4. MULTAQ [Concomitant]
     Indication: ATRIAL FIBRILLATION
     Dosage: 800 MG
     Route: 048
  5. METOPROLOL TARTRATE [Concomitant]
     Dosage: 25 MG
     Route: 048
  6. CITALOPRAM [Concomitant]
     Dosage: 40 MG
     Route: 048
  7. SIMVASTATIN [Concomitant]
     Dosage: 80 MG
     Route: 048
  8. ENALAPRIL [Concomitant]
     Dosage: 2.5 MG
     Route: 048
  9. FUROSEMIDE [Concomitant]
     Dosage: 40 MG
     Route: 048
  10. HYDROXYZINE [Concomitant]
     Dosage: 25 MG
     Route: 048

REACTIONS (2)
  - Gastrointestinal haemorrhage [Recovered/Resolved]
  - Anaemia [Unknown]
